FAERS Safety Report 11023760 (Version 5)
Quarter: 2015Q2

REPORT INFORMATION
  Report Type: Spontaneous
  Country: US (occurrence: US)
  Receive Date: 20150413
  Receipt Date: 20150527
  Transmission Date: 20150821
  Serious: Yes (Other)
  Sender: FDA-Public Use
  Company Number: US-PFIZER INC-2015122300

PATIENT
  Age: 40 Year
  Sex: Female
  Weight: 91 kg

DRUGS (10)
  1. CYMBALTA [Suspect]
     Active Substance: DULOXETINE HYDROCHLORIDE
     Indication: ARTHRALGIA
  2. CYMBALTA [Suspect]
     Active Substance: DULOXETINE HYDROCHLORIDE
     Indication: NEURALGIA
  3. LYRICA [Suspect]
     Active Substance: PREGABALIN
     Indication: JOINT SWELLING
     Dosage: 150 MG, 3X/DAY
     Route: 048
     Dates: start: 20120922
  4. LYRICA [Suspect]
     Active Substance: PREGABALIN
     Indication: FIBROMYALGIA
     Dosage: 150-200MG, 3X/DAY
     Route: 048
  5. LYRICA [Suspect]
     Active Substance: PREGABALIN
     Indication: NEURALGIA
  6. VITAMIN D [Concomitant]
     Active Substance: CHOLECALCIFEROL
     Dosage: UNK
     Dates: start: 20130402
  7. LYRICA [Suspect]
     Active Substance: PREGABALIN
     Indication: ARTHRALGIA
  8. CYMBALTA [Suspect]
     Active Substance: DULOXETINE HYDROCHLORIDE
     Indication: JOINT SWELLING
     Dosage: 60 MG, 1X/DAY
     Route: 048
     Dates: start: 20061207
  9. CYMBALTA [Suspect]
     Active Substance: DULOXETINE HYDROCHLORIDE
     Indication: BACK PAIN
  10. MELOXICAM. [Concomitant]
     Active Substance: MELOXICAM
     Indication: JOINT SWELLING
     Dosage: UNK
     Dates: start: 20090730

REACTIONS (16)
  - Headache [Not Recovered/Not Resolved]
  - Mood swings [Not Recovered/Not Resolved]
  - Fatigue [Unknown]
  - Joint swelling [Unknown]
  - Dizziness [Not Recovered/Not Resolved]
  - Nausea [Unknown]
  - Dry mouth [Not Recovered/Not Resolved]
  - Increased appetite [Unknown]
  - Vomiting [Unknown]
  - Back pain [Unknown]
  - Constipation [Unknown]
  - Muscle twitching [Unknown]
  - Vision blurred [Not Recovered/Not Resolved]
  - Weight increased [Not Recovered/Not Resolved]
  - Asthenia [Unknown]
  - Peripheral swelling [Unknown]

NARRATIVE: CASE EVENT DATE: 2007
